FAERS Safety Report 8526033-1 (Version None)
Quarter: 2012Q3

REPORT INFORMATION
  Report Type: 
  Country: None (occurrence: None)
  Receive Date: 20120720
  Receipt Date: 20120707
  Transmission Date: 20120928
  Serious: Yes (Hospitalization)
  Sender: FDA-Public Use
  Company Number: JP-AMGEN-JPNSP2012026023

PATIENT
  Age: 63 Year
  Sex: Female

DRUGS (9)
  1. ENBREL [Suspect]
     Dosage: 25 MG, 2X/WEEK
     Dates: start: 20060323, end: 20101224
  2. CALCIUM LACTATE [Concomitant]
     Indication: PROPHYLAXIS
     Dosage: 1 G, 2X/DAY
     Route: 048
     Dates: start: 20030401, end: 20080915
  3. ETODOLAC [Concomitant]
     Indication: RHEUMATOID ARTHRITIS
     Dosage: UNK
     Route: 048
     Dates: start: 20030917
  4. SELBEX [Concomitant]
     Indication: GASTRITIS
     Dosage: 50 MG, 1X/DAY
     Route: 048
     Dates: start: 20030917, end: 20110110
  5. ONE-ALPHA [Concomitant]
     Indication: OSTEOPOROSIS
     Dosage: 100 UG, 1X/DAY
     Route: 048
     Dates: start: 20030401
  6. ENBREL [Suspect]
     Dosage: UNK
     Dates: start: 20060301
  7. PREDNISOLONE [Concomitant]
     Indication: RHEUMATOID ARTHRITIS
     Dosage: 25 MG, 2X/DAY
     Route: 048
  8. FOLIAMIN [Concomitant]
     Indication: PROPHYLAXIS
     Dosage: 5 G, 1X/DAY
     Route: 048
     Dates: start: 20050624, end: 20110107
  9. RHEUMATREX [Concomitant]
     Dosage: 2 MG, 4 TIMES WEEKLY
     Route: 048
     Dates: start: 20031015, end: 20110107

REACTIONS (1)
  - SARCOIDOSIS [None]
